FAERS Safety Report 20975905 (Version 1)
Quarter: 2022Q2

REPORT INFORMATION
  Report Type: Spontaneous
  Country: HR (occurrence: HR)
  Receive Date: 20220617
  Receipt Date: 20220617
  Transmission Date: 20220720
  Serious: Yes (Disabling, Other)
  Sender: FDA-Public Use
  Company Number: None

PATIENT
  Age: 31 Year
  Sex: Female
  Weight: 95 kg

DRUGS (1)
  1. ZYPREXA [Suspect]
     Active Substance: OLANZAPINE
     Indication: Schizophrenia
     Dosage: 5 MG, DAILY
     Route: 048
     Dates: start: 20190601, end: 20210301

REACTIONS (8)
  - Hypertrichosis [Recovered/Resolved with Sequelae]
  - Hypersomnia [Recovering/Resolving]
  - Premenstrual syndrome [Recovered/Resolved with Sequelae]
  - Memory impairment [Recovered/Resolved with Sequelae]
  - Malaise [Recovering/Resolving]
  - Asthenia [Recovering/Resolving]
  - Increased appetite [Recovered/Resolved with Sequelae]
  - Somnolence [Recovering/Resolving]

NARRATIVE: CASE EVENT DATE: 20190601
